FAERS Safety Report 19181203 (Version 1)
Quarter: 2021Q2

REPORT INFORMATION
  Report Type: Spontaneous
  Country: DE (occurrence: DE)
  Receive Date: 20210426
  Receipt Date: 20210426
  Transmission Date: 20210717
  Serious: Yes (Other)
  Sender: FDA-Public Use
  Company Number: DE-ORPHANEU-2021001424

PATIENT

DRUGS (1)
  1. PASIREOTIDE LAR [Suspect]
     Active Substance: PASIREOTIDE
     Indication: NELSON^S SYNDROME
     Dosage: UNK
     Route: 065
     Dates: start: 2013

REACTIONS (4)
  - Electrocardiogram QT prolonged [Unknown]
  - Hyperglycaemia [Unknown]
  - Abdominal symptom [Unknown]
  - Product use in unapproved indication [Recovered/Resolved]
